FAERS Safety Report 7376281-1 (Version None)
Quarter: 2011Q1

REPORT INFORMATION
  Report Type: 
  Country: None (occurrence: None)
  Receive Date: 20110325
  Receipt Date: 20110322
  Transmission Date: 20110831
  Serious: Yes (Other)
  Sender: FDA-Public Use
  Company Number: US-PFIZER INC-2011063400

PATIENT
  Sex: Female
  Weight: 113.38 kg

DRUGS (1)
  1. CELEBREX [Suspect]
     Indication: ARTHRITIS
     Dosage: 200 MG, UNK
     Dates: start: 19900101

REACTIONS (2)
  - HEART RATE INCREASED [None]
  - BLOOD PRESSURE ABNORMAL [None]
